FAERS Safety Report 10414599 (Version 1)
Quarter: 2014Q3

REPORT INFORMATION
  Report Type: Spontaneous
  Country: US (occurrence: US)
  Receive Date: 20140828
  Receipt Date: 20140828
  Transmission Date: 20150326
  Serious: No
  Sender: FDA-Public Use
  Company Number: US-BIOGENIDEC-2014BI085070

PATIENT
  Age: 55 Year
  Sex: Male

DRUGS (1)
  1. TECFIDERA [Suspect]
     Active Substance: DIMETHYL FUMARATE
     Indication: RELAPSING-REMITTING MULTIPLE SCLEROSIS
     Dates: start: 201401

REACTIONS (9)
  - Nervousness [Unknown]
  - Hot flush [Unknown]
  - Hypoacusis [Unknown]
  - Vomiting [Unknown]
  - Epigastric discomfort [Unknown]
  - Fear [Unknown]
  - Rash papular [Unknown]
  - Cognitive disorder [Unknown]
  - Hyperacusis [Unknown]

NARRATIVE: CASE EVENT DATE: 20140812
